FAERS Safety Report 5808364-9 (Version None)
Quarter: 2008Q3

REPORT INFORMATION
  Report Type: 
  Country: None (occurrence: None)
  Receive Date: 20080714
  Receipt Date: 20080702
  Transmission Date: 20090109
  Serious: Yes (Disabling)
  Sender: FDA-Public Use
  Company Number: PHEH2007US06569

PATIENT
  Sex: Male

DRUGS (1)
  1. LOTREL [Suspect]
     Indication: HYPERTENSION
     Dosage: UNK, QD
     Route: 048
     Dates: start: 20070101, end: 20070201

REACTIONS (5)
  - ALOPECIA [None]
  - DYSPAREUNIA [None]
  - LICHEN PLANUS [None]
  - PAIN [None]
  - ULCER [None]
